FAERS Safety Report 17178087 (Version 2)
Quarter: 2020Q1

REPORT INFORMATION
  Report Type: Report from Study
  Country: GB (occurrence: GB)
  Receive Date: 20191219
  Receipt Date: 20200103
  Transmission Date: 20200409
  Serious: Yes (Other)
  Sender: FDA-Public Use
  Company Number: GB-PFIZER INC-2019388691

PATIENT
  Age: 63 Year
  Sex: Male

DRUGS (5)
  1. ENTRESTO [Suspect]
     Active Substance: SACUBITRIL\VALSARTAN
     Dosage: 1 DF TWICE DAILY (SACUBITRIL 97 MG, VALSARTAN 103 MG)
     Route: 048
     Dates: start: 20190801, end: 20190823
  2. EPLERENONE. [Suspect]
     Active Substance: EPLERENONE
     Dosage: 25 MG, DAILY
     Route: 065
     Dates: end: 20190823
  3. ENTRESTO [Suspect]
     Active Substance: SACUBITRIL\VALSARTAN
     Dosage: 1 DF, 2X/DAY (SACUBITRIL 49 MG, VALSARTAN 51 MG)
     Route: 065
     Dates: start: 20190827
  4. ENTRESTO [Suspect]
     Active Substance: SACUBITRIL\VALSARTAN
     Indication: LEFT VENTRICULAR DYSFUNCTION
     Dosage: 50 MG, 2X/DAY
     Route: 065
     Dates: start: 201903
  5. ENTRESTO [Suspect]
     Active Substance: SACUBITRIL\VALSARTAN
     Dosage: 1 DF TWICE DAILY  (SACUBITRIL 24 MG, VALSARTAN 26 MG)
     Route: 048
     Dates: start: 20190409

REACTIONS (3)
  - Blood urea increased [Unknown]
  - Hyperkalaemia [Recovered/Resolved]
  - Blood potassium increased [Recovering/Resolving]

NARRATIVE: CASE EVENT DATE: 20190408
